FAERS Safety Report 24578801 (Version 2)
Quarter: 2025Q3

REPORT INFORMATION
  Report Type: Spontaneous
  Country: US (occurrence: US)
  Receive Date: 20241105
  Receipt Date: 20250812
  Transmission Date: 20251020
  Serious: Yes (Other)
  Sender: UCB
  Company Number: US-UCBSA-2024056387

PATIENT
  Sex: Male

DRUGS (4)
  1. KEPPRA [Suspect]
     Active Substance: LEVETIRACETAM
     Indication: Severe myoclonic epilepsy of infancy
  2. KEPPRA [Suspect]
     Active Substance: LEVETIRACETAM
  3. KEPPRA [Suspect]
     Active Substance: LEVETIRACETAM
     Dates: end: 20250723
  4. FINTEPLA [Concomitant]
     Active Substance: FENFLURAMINE
     Indication: Severe myoclonic epilepsy of infancy
     Dosage: 3 MILLILITER, 2X/DAY (BID)

REACTIONS (1)
  - Seizure [Not Recovered/Not Resolved]
